FAERS Safety Report 5678348-2 (Version None)
Quarter: 2008Q1

REPORT INFORMATION
  Report Type: 
  Country: None (occurrence: None)
  Receive Date: 20080320
  Receipt Date: 20080215
  Transmission Date: 20080703
  Serious: Yes (Disabling)
  Sender: FDA-Public Use
  Company Number: 001#1#2008-00119

PATIENT
  Age: 62 Year
  Sex: Male

DRUGS (3)
  1. ALPROSTADIL [Suspect]
     Indication: FROSTBITE
     Dosage: 80 MCG (40 MCG 2 IN 1 DAY (S)) INTRAVENOUS
     Route: 042
     Dates: start: 20071228, end: 20080128
  2. SODIUM CHLORIDE [Suspect]
     Indication: FROSTBITE
     Dosage: 500 ML (250 ML 2 IN 1 DAY (S)) INTRAVENOUS
     Route: 042
     Dates: start: 20071228, end: 20080128
  3. HEPARIN [Concomitant]

REACTIONS (1)
  - NEUROPATHIC ARTHROPATHY [None]
